FAERS Safety Report 6346603-9 (Version None)
Quarter: 2009Q3

REPORT INFORMATION
  Report Type: 
  Country: None (occurrence: None)
  Receive Date: 20090901
  Receipt Date: 20090826
  Transmission Date: 20100115
  Serious: Yes (Other)
  Sender: FDA-Public Use
  Company Number: A0804538A

PATIENT
  Age: 76 Year
  Sex: Female

DRUGS (1)
  1. UREA PEROXIDE [Suspect]
     Indication: DRUG USE FOR UNKNOWN INDICATION
     Dosage: AURAL

REACTIONS (3)
  - DEAFNESS UNILATERAL [None]
  - EXPIRED DRUG ADMINISTERED [None]
  - TINNITUS [None]
